FAERS Safety Report 7353081-X (Version None)
Quarter: 2011Q1

REPORT INFORMATION
  Report Type: 
  Country: None (occurrence: None)
  Receive Date: 20110315
  Receipt Date: 20110308
  Transmission Date: 20110831
  Serious: Yes (Life-Threatening)
  Sender: FDA-Public Use
  Company Number: B0705679A

PATIENT
  Sex: Female

DRUGS (1)
  1. RELENZA [Suspect]
     Indication: INFLUENZA
     Route: 055
     Dates: start: 20110220, end: 20110220

REACTIONS (2)
  - LARYNGOSPASM [None]
  - LARYNGEAL OEDEMA [None]
